FAERS Safety Report 10415851 (Version 2)
Quarter: 2014Q4

REPORT INFORMATION
  Report Type: Spontaneous
  Country: US (occurrence: US)
  Receive Date: 20140828
  Receipt Date: 20141113
  Transmission Date: 20150528
  Serious: Yes (Hospitalization)
  Sender: FDA-Public Use
  Company Number: US-BAYER-2014-127927

PATIENT
  Age: 23 Year
  Sex: Female
  Weight: 82.54 kg

DRUGS (3)
  1. MIDOL IB [Concomitant]
     Indication: MENORRHAGIA
  2. FLAGYL [Concomitant]
     Active Substance: METRONIDAZOLE\METRONIDAZOLE HYDROCHLORIDE
  3. MIRENA [Suspect]
     Active Substance: LEVONORGESTREL
     Indication: CONTRACEPTION
     Dosage: 20 MCG/24HR, CONT
     Route: 015
     Dates: start: 20110810, end: 20131217

REACTIONS (6)
  - Emotional distress [None]
  - Uterine perforation [None]
  - Pain [None]
  - Injury [None]
  - Off label use [None]
  - Menorrhagia [None]

NARRATIVE: CASE EVENT DATE: 201108
